FAERS Safety Report 7596668-1 (Version None)
Quarter: 2011Q3

REPORT INFORMATION
  Report Type: 
  Country: None (occurrence: None)
  Receive Date: 20110708
  Receipt Date: 20110627
  Transmission Date: 20111222
  Serious: Yes (Death, Hospitalization)
  Sender: FDA-Public Use
  Company Number: US-ELI_LILLY_AND_COMPANY-US201105001630

PATIENT
  Sex: Female

DRUGS (11)
  1. LASIX [Concomitant]
  2. MAGNESIUM OXIDE [Concomitant]
  3. POTASSIUM CHLORIDE [Concomitant]
  4. NITROFURANTOIN [Concomitant]
  5. FORTEO [Suspect]
     Indication: OSTEOPOROSIS
     Dosage: 20 UG, QD
  6. IMDUR [Concomitant]
  7. ISOSORBIDE MONONITRATE [Concomitant]
  8. MACROBID [Concomitant]
  9. ASPIRIN [Concomitant]
  10. TOPROL-XL [Concomitant]
  11. DUONEB [Concomitant]

REACTIONS (3)
  - CARDIAC FAILURE CONGESTIVE [None]
  - DEATH [None]
  - DYSPNOEA [None]
